FAERS Safety Report 11483439 (Version 1)
Quarter: 2015Q3

REPORT INFORMATION
  Report Type: Spontaneous
  Country: KR (occurrence: None)
  Receive Date: 20150908
  Receipt Date: 20150908
  Transmission Date: 20151125
  Serious: Yes (Hospitalization)
  Sender: FDA-Public Use
  Company Number: NSR_02237_2015

PATIENT
  Age: 68 Year
  Sex: Female

DRUGS (1)
  1. ALLOPURINOL (ALLOPURINOL) [Suspect]
     Active Substance: ALLOPURINOL
     Indication: PROPHYLAXIS
     Dosage: 1 WEEK 3 DAYS (5.2 MG/ML/MIN); STARTING AND MAINTENANCE

REACTIONS (1)
  - Drug reaction with eosinophilia and systemic symptoms [None]
